FAERS Safety Report 12397301 (Version 1)
Quarter: 2016Q2

REPORT INFORMATION
  Report Type: Spontaneous
  Country: GB (occurrence: GB)
  Receive Date: 20160524
  Receipt Date: 20160524
  Transmission Date: 20160815
  Serious: Yes (Other)
  Sender: FDA-Public Use
  Company Number: GB-SUN PHARMACEUTICAL INDUSTRIES LTD-2016RR-117130

PATIENT
  Age: 29 Year
  Sex: Female
  Weight: 95 kg

DRUGS (5)
  1. FLUOXETINE [Suspect]
     Active Substance: FLUOXETINE HYDROCHLORIDE
     Indication: MOOD SWINGS
     Dosage: 20 MG, UNK
     Route: 048
     Dates: start: 20160208, end: 20160308
  2. DIAZEPAM. [Concomitant]
     Active Substance: DIAZEPAM
     Indication: PRODUCT USED FOR UNKNOWN INDICATION
     Dosage: UNK
     Route: 065
  3. FLUOXETINE [Suspect]
     Active Substance: FLUOXETINE HYDROCHLORIDE
     Indication: MOOD SWINGS
     Dosage: 40 MG, UNK
     Route: 048
     Dates: start: 20160308, end: 20160326
  4. FLUOXETINE [Suspect]
     Active Substance: FLUOXETINE HYDROCHLORIDE
     Indication: MOOD SWINGS
     Dosage: 20 MG, UNK
     Route: 048
     Dates: start: 20160326, end: 20160404
  5. SERTRALINE [Suspect]
     Active Substance: SERTRALINE HYDROCHLORIDE
     Indication: PRODUCT USED FOR UNKNOWN INDICATION
     Dosage: 50 MG, UNK
     Route: 048
     Dates: start: 20160404, end: 20160424

REACTIONS (3)
  - Drug ineffective [Unknown]
  - Liver function test abnormal [Recovering/Resolving]
  - Abdominal pain upper [Unknown]

NARRATIVE: CASE EVENT DATE: 20160420
